FAERS Safety Report 15587708 (Version 1)
Quarter: 2018Q4

REPORT INFORMATION
  Report Type: Spontaneous
  Country: DE (occurrence: DE)
  Receive Date: 20181105
  Receipt Date: 20181105
  Transmission Date: 20190205
  Serious: Yes (Death, Other)
  Sender: FDA-Public Use
  Company Number: PHHY2018DE146483

PATIENT
  Sex: Male

DRUGS (1)
  1. DEXAMETHASONE. [Suspect]
     Active Substance: DEXAMETHASONE
     Indication: FOETAL EXPOSURE DURING PREGNANCY
     Dosage: MATERNAL DOSE : 8 MG TID
     Route: 064

REACTIONS (4)
  - Pulmonary haemorrhage [Fatal]
  - Foetal exposure during pregnancy [Unknown]
  - Sepsis [Fatal]
  - Premature baby [Unknown]
